FAERS Safety Report 5740395-X (Version None)
Quarter: 2008Q2

REPORT INFORMATION
  Report Type: 
  Country: None (occurrence: None)
  Receive Date: 20080516
  Receipt Date: 20080512
  Transmission Date: 20081010
  Serious: Yes (Hospitalization)
  Sender: FDA-Public Use
  Company Number: US-GILEAD-2008-0016374

PATIENT
  Sex: Male

DRUGS (4)
  1. TRUVADA [Suspect]
     Indication: HIV INFECTION
     Route: 065
  2. ABACAVIR [Concomitant]
     Indication: HIV INFECTION
     Route: 065
  3. KALETRA [Concomitant]
     Indication: HIV INFECTION
     Route: 065
  4. LIPITOR [Concomitant]
     Route: 065

REACTIONS (3)
  - BLOOD LACTATE DEHYDROGENASE INCREASED [None]
  - RENAL FAILURE ACUTE [None]
  - TUMOUR LYSIS SYNDROME [None]
